FAERS Safety Report 7531940-2 (Version None)
Quarter: 2011Q2

REPORT INFORMATION
  Report Type: 
  Country: None (occurrence: None)
  Receive Date: 20110608
  Receipt Date: 20110527
  Transmission Date: 20111010
  Serious: Yes (Other)
  Sender: FDA-Public Use
  Company Number: AU-SANOFI-AVENTIS-2011SA034144

PATIENT

DRUGS (3)
  1. CAPECITABINE [Suspect]
     Indication: RECTAL CANCER
     Route: 048
  2. THERAPEUTIC RADIOPHARMACEUTICALS [Suspect]
     Indication: RECTAL CANCER
     Dosage: TOTAL 45 GRAY, 5 DAYS PER WEEK FOR 5 WEEKS
     Route: 065
  3. OXALIPLATIN [Suspect]
     Indication: RECTAL CANCER
     Route: 042

REACTIONS (10)
  - DIABETES MELLITUS [None]
  - HEPATOTOXICITY [None]
  - DIARRHOEA [None]
  - VOMITING [None]
  - HYPERTENSION [None]
  - LEUKOPENIA [None]
  - PYREXIA [None]
  - TOXICITY TO VARIOUS AGENTS [None]
  - ANAEMIA [None]
  - PULMONARY EMBOLISM [None]
